FAERS Safety Report 6729613-9 (Version None)
Quarter: 2010Q2

REPORT INFORMATION
  Report Type: 
  Country: None (occurrence: None)
  Receive Date: 20100518
  Receipt Date: 20100513
  Transmission Date: 20101027
  Serious: Yes (Hospitalization, Other)
  Sender: FDA-Public Use
  Company Number: US-ASTRAZENECA-2008UW27464

PATIENT
  Age: 59 Year
  Sex: Female
  Weight: 68 kg

DRUGS (4)
  1. SEROQUEL [Suspect]
     Indication: DEPRESSION
     Dosage: 100 MG-300 MG
     Route: 048
     Dates: start: 20011217, end: 20020101
  2. RISPERDAL [Concomitant]
     Dates: start: 20010101
  3. ZYPREXA [Concomitant]
     Dates: start: 20030101, end: 20030501
  4. ZOLOFT [Concomitant]
     Indication: DEPRESSION
     Dates: start: 19970101

REACTIONS (10)
  - BLOOD CHOLESTEROL INCREASED [None]
  - BLOOD TRIGLYCERIDES INCREASED [None]
  - COMA [None]
  - HEADACHE [None]
  - HYPERLIPIDAEMIA [None]
  - PANCREATIC NECROSIS [None]
  - PANCREATITIS [None]
  - PANCREATITIS NECROTISING [None]
  - TYPE 2 DIABETES MELLITUS [None]
  - VISUAL IMPAIRMENT [None]
